FAERS Safety Report 23280582 (Version 1)
Quarter: 2023Q4

REPORT INFORMATION
  Report Type: Spontaneous
  Country: GB (occurrence: GB)
  Receive Date: 20231211
  Receipt Date: 20231211
  Transmission Date: 20240110
  Serious: Yes (Other)
  Sender: FDA-Public Use
  Company Number: GB-Accord-391692

PATIENT
  Age: 44 Year
  Sex: Female

DRUGS (2)
  1. RISPERDAL [Suspect]
     Active Substance: RISPERIDONE
     Indication: Schizoaffective disorder
     Dosage: OD
     Route: 065
  2. CARBIMAZOLE [Concomitant]
     Active Substance: CARBIMAZOLE
     Dosage: OD

REACTIONS (17)
  - Anxiety [Unknown]
  - Libido decreased [Unknown]
  - Agitation [Unknown]
  - Nervousness [Unknown]
  - Social problem [Unknown]
  - Somnolence [Unknown]
  - Loss of personal independence in daily activities [Unknown]
  - Paranoia [Unknown]
  - Asthma [Unknown]
  - Lower respiratory tract infection [Unknown]
  - Urinary tract infection [Unknown]
  - Headache [Unknown]
  - Hyperprolactinaemia [Unknown]
  - Restlessness [Unknown]
  - Hyperthyroidism [Unknown]
  - Insomnia [Unknown]
  - Stress [Unknown]
